FAERS Safety Report 6376461-8 (Version None)
Quarter: 2009Q3

REPORT INFORMATION
  Report Type: 
  Country: None (occurrence: None)
  Receive Date: 20090922
  Receipt Date: 20090922
  Transmission Date: 20100115
  Serious: Yes (Other)
  Sender: FDA-Public Use
  Company Number: None

PATIENT
  Age: 23 Year
  Sex: Female
  Weight: 59.4212 kg

DRUGS (2)
  1. YASMIN [Suspect]
     Indication: TURNER'S SYNDROME
     Dosage: 3.0MG DROSPIRENONE/0.030MG ONCE A DAY BUCCAL
     Route: 002
     Dates: start: 20051201, end: 20090812
  2. YAZ [Suspect]
     Indication: TURNER'S SYNDROME
     Dosage: 3.0MG DROSPIRENONE/0.020MG ONCE A DAY BUCCAL
     Route: 002
     Dates: start: 20090605, end: 20090701

REACTIONS (7)
  - ANXIETY [None]
  - ATRIAL FLUTTER [None]
  - BLOOD CHOLESTEROL INCREASED [None]
  - HEART VALVE INCOMPETENCE [None]
  - HYPERTENSION [None]
  - MOOD SWINGS [None]
  - PRODUCT SUBSTITUTION ISSUE [None]
